FAERS Safety Report 5810083-X (Version None)
Quarter: 2008Q3

REPORT INFORMATION
  Report Type: 
  Country: None (occurrence: None)
  Receive Date: 20080715
  Receipt Date: 20080711
  Transmission Date: 20090109
  Serious: Yes (Disabling)
  Sender: FDA-Public Use
  Company Number: B0528813A

PATIENT
  Age: 76 Year
  Sex: Male

DRUGS (3)
  1. ZANTAC [Suspect]
     Indication: PROPHYLAXIS
     Route: 042
     Dates: start: 20080613, end: 20080618
  2. CEFAMEZIN [Concomitant]
     Dates: start: 20080601, end: 20080618
  3. PHENYTOIN [Concomitant]
     Route: 048
     Dates: end: 20080618

REACTIONS (1)
  - INTERSTITIAL LUNG DISEASE [None]
